FAERS Safety Report 6330476-4 (Version None)
Quarter: 2009Q3

REPORT INFORMATION
  Report Type: 
  Country: None (occurrence: None)
  Receive Date: 20090827
  Receipt Date: 20081112
  Transmission Date: 20100115
  Serious: No
  Sender: FDA-Public Use
  Company Number: A0756216A

PATIENT

DRUGS (1)
  1. ACYCLOVIR [Suspect]
     Route: 042
     Dates: start: 20081112

REACTIONS (1)
  - INFUSION SITE EXTRAVASATION [None]
